FAERS Safety Report 5592380-9 (Version None)
Quarter: 2008Q1

REPORT INFORMATION
  Report Type: 
  Country: None (occurrence: None)
  Receive Date: 20080115
  Receipt Date: 20080109
  Transmission Date: 20080703
  Serious: Yes (Life-Threatening)
  Sender: FDA-Public Use
  Company Number: JP-PFIZER INC-2007088560

PATIENT
  Sex: Male
  Weight: 55 kg

DRUGS (5)
  1. IRINOTECAN HCL [Suspect]
     Indication: GASTRIC CANCER
     Route: 042
     Dates: start: 20051124, end: 20051124
  2. RANDA [Suspect]
     Indication: GASTRIC CANCER
     Dates: start: 20051124, end: 20051124
  3. LASIX [Concomitant]
     Indication: POLYURIA
     Route: 042
     Dates: start: 20051124, end: 20051126
  4. DECADRON [Concomitant]
     Indication: PROPHYLAXIS OF NAUSEA AND VOMITING
     Route: 042
     Dates: start: 20051124, end: 20051126
  5. KYTRIL [Concomitant]
     Indication: PROPHYLAXIS OF NAUSEA AND VOMITING
     Route: 042
     Dates: start: 20051101, end: 20051126

REACTIONS (5)
  - DISSEMINATED INTRAVASCULAR COAGULATION [None]
  - LEUKOPENIA [None]
  - NEUTROPENIA [None]
  - SEPTIC SHOCK [None]
  - THROMBOCYTOPENIA [None]
